FAERS Safety Report 25421012 (Version 2)
Quarter: 2025Q3

REPORT INFORMATION
  Report Type: Spontaneous
  Country: US (occurrence: US)
  Receive Date: 20250611
  Receipt Date: 20250720
  Transmission Date: 20251021
  Serious: Yes (Other)
  Sender: BRISTOL-MYERS SQUIBB COMPANY
  Company Number: US-BRISTOL-MYERS SQUIBB COMPANY-2025-081932

PATIENT
  Age: 78 Year
  Sex: Female

DRUGS (2)
  1. POMALYST [Suspect]
     Active Substance: POMALIDOMIDE
     Indication: Plasma cell myeloma in remission
     Dosage: DALIY
     Route: 048
  2. POMALYST [Suspect]
     Active Substance: POMALIDOMIDE
     Dosage: 2MG EVERY DAY FOR 21 DAYS THEN 7 DAYS OFF ORAL
     Route: 048

REACTIONS (5)
  - Abdominal mass [Unknown]
  - Bone disorder [Unknown]
  - Gastric cancer [Unknown]
  - Weight decreased [Unknown]
  - Diarrhoea [Unknown]

NARRATIVE: CASE EVENT DATE: 20250101
